FAERS Safety Report 11922126 (Version 1)
Quarter: 2016Q1

REPORT INFORMATION
  Report Type: Spontaneous
  Country: IT (occurrence: IT)
  Receive Date: 20160115
  Receipt Date: 20160115
  Transmission Date: 20160526
  Serious: Yes (Hospitalization)
  Sender: FDA-Public Use
  Company Number: PHHY2016IT002149

PATIENT
  Age: 80 Year
  Sex: Female

DRUGS (1)
  1. ALLOPURINOL. [Suspect]
     Active Substance: ALLOPURINOL
     Indication: HYPERURICAEMIA
     Dosage: 300 MG, QD
     Route: 048
     Dates: start: 20151202, end: 20160101

REACTIONS (7)
  - Rash pruritic [Unknown]
  - Conjunctivitis [Unknown]
  - Bronchospasm [Unknown]
  - Gingivitis [Unknown]
  - Mucosal inflammation [Unknown]
  - Dyspnoea [Unknown]
  - Urethritis [Unknown]

NARRATIVE: CASE EVENT DATE: 20160101
